FAERS Safety Report 13744698 (Version 2)
Quarter: 2017Q3

REPORT INFORMATION
  Report Type: Report from Study
  Country: BR (occurrence: BR)
  Receive Date: 20170712
  Receipt Date: 20170830
  Transmission Date: 20171127
  Serious: Yes (Other)
  Sender: FDA-Public Use
  Company Number: BR-AMGEN-BRACT2011050678

PATIENT
  Age: 72 Year
  Sex: Female
  Weight: 50 kg

DRUGS (15)
  1. ETANERCEPT [Suspect]
     Active Substance: ETANERCEPT
     Indication: RHEUMATOID ARTHRITIS
     Dosage: 25 MG, 2 TIMES/WK
     Route: 058
     Dates: start: 200709, end: 2011
  2. TECNOMET [Concomitant]
     Active Substance: METHOTREXATE
     Dosage: UNK, CYCLIC ONCE DAILY (EXCEPT ON SUNDAY)
  3. GINKO BILOBA [Concomitant]
     Active Substance: GINKGO
     Dosage: UNK UNK, 1X/DAY
  4. ETANERCEPT [Suspect]
     Active Substance: ETANERCEPT
     Dosage: 50 MG, ONCE WEEKLY
     Route: 058
     Dates: start: 201206
  5. PRATIPRAZOL [Concomitant]
     Dosage: UNK UNK, 1X/DAY
  6. ENALAPRIL MALEATE. [Concomitant]
     Active Substance: ENALAPRIL MALEATE
     Dosage: UNK UNK, 1X/DAY
  7. AFOPIC [Concomitant]
     Dosage: UNK UNK, 1X/DAY
  8. HYDROCHLOROTHIAZIDE. [Concomitant]
     Active Substance: HYDROCHLOROTHIAZIDE
     Dosage: UNK, 1X/DAY
  9. LEVOID [Concomitant]
     Active Substance: LEVOTHYROXINE
     Dosage: UNK UNK, 1X/DAY
  10. AMIODARONE HYDROCHLORIDE. [Concomitant]
     Active Substance: AMIODARONE HYDROCHLORIDE
     Dosage: A HALF OF TABLET OF 200MG (100 MG), 1X/DAY
  11. VICOG [Concomitant]
     Active Substance: VINPOCETINE
     Dosage: UNK
  12. TIMOLOL MALEATE. [Concomitant]
     Active Substance: TIMOLOL MALEATE
     Dosage: UNK
  13. HYDROCHLOROTHIAZIDE. [Concomitant]
     Active Substance: HYDROCHLOROTHIAZIDE
     Dosage: UNK, 1X/DAY
  14. OSTEONUTRI [Concomitant]
     Dosage: UNK, STRENGTH [CALCIUM PHOSPHATE DIBASIC 600 MG] / [COLECALCIFEROL 400 IU]
  15. LOSARTAN POTASSIUM. [Concomitant]
     Active Substance: LOSARTAN POTASSIUM
     Dosage: UNK

REACTIONS (11)
  - Headache [Recovered/Resolved]
  - Injection site discomfort [Recovered/Resolved]
  - Femur fracture [Recovered/Resolved]
  - Gait disturbance [Recovered/Resolved]
  - Influenza [Recovered/Resolved]
  - Injection site pain [Recovered/Resolved]
  - Fall [Recovered/Resolved]
  - Arthropathy [Recovered/Resolved]
  - Cough [Recovered/Resolved]
  - Rhinorrhoea [Recovered/Resolved]
  - Skin discolouration [Recovered/Resolved]
